FAERS Safety Report 5725110-8 (Version None)
Quarter: 2008Q2

REPORT INFORMATION
  Report Type: 
  Country: None (occurrence: None)
  Receive Date: 20080501
  Receipt Date: 20080418
  Transmission Date: 20081010
  Serious: Yes (Hospitalization, Other)
  Sender: FDA-Public Use
  Company Number: US-BAYER-200820758NA

PATIENT
  Age: 61 Year
  Sex: Male

DRUGS (4)
  1. ULTRAVIST 370 [Suspect]
     Indication: COMPUTERISED TOMOGRAM ABDOMEN
     Dosage: TOTAL DAILY DOSE: 100 ML  UNIT DOSE: 100 ML
     Route: 042
     Dates: start: 20080417, end: 20080417
  2. TERADOSIN [Concomitant]
  3. NEXIUM [Concomitant]
  4. E-Z-CAT [Concomitant]

REACTIONS (6)
  - BLOOD PRESSURE DECREASED [None]
  - FALL [None]
  - LOSS OF CONSCIOUSNESS [None]
  - MALAISE [None]
  - RED MAN SYNDROME [None]
  - SWELLING [None]
